FAERS Safety Report 4583805-6 (Version None)
Quarter: 2005Q1

REPORT INFORMATION
  Report Type: 
  Country: None (occurrence: None)
  Receive Date: 20050211
  Receipt Date: 20050201
  Transmission Date: 20050727
  Serious: Yes (Hospitalization, Other)
  Sender: FDA-Public Use
  Company Number: MEDI-0002789

PATIENT
  Age: 58 Year
  Sex: Male
  Weight: 119.296 kg

DRUGS (9)
  1. ETHYOL [Suspect]
     Indication: RADIOTHERAPY
     Dosage: 500 MG, 3 IN 1 WK, SUBCUTANEOUS
     Route: 058
     Dates: start: 20050113, end: 20050124
  2. RADIATION THERAPY [Concomitant]
  3. CISPLATIN [Concomitant]
  4. REGLAN [Concomitant]
  5. ZYRTEC [Concomitant]
  6. LEVAQUIN [Concomitant]
  7. TOBRAMYCIN [Concomitant]
  8. IMIPENEM (IMIPENEM) [Concomitant]
  9. VANCOMYCIN [Concomitant]

REACTIONS (17)
  - BLOOD POTASSIUM DECREASED [None]
  - BLOOD SODIUM DECREASED [None]
  - CONFUSIONAL STATE [None]
  - HYPERSENSITIVITY [None]
  - HYPOTENSION [None]
  - LABORATORY TEST INTERFERENCE [None]
  - LEUKOCYTOSIS [None]
  - MONOCYTE COUNT DECREASED [None]
  - NAUSEA [None]
  - NEUTROPHIL COUNT INCREASED [None]
  - PYREXIA [None]
  - RASH ERYTHEMATOUS [None]
  - RASH GENERALISED [None]
  - RASH MACULAR [None]
  - RENAL FAILURE ACUTE [None]
  - SEPSIS [None]
  - STREPTOCOCCAL INFECTION [None]
